FAERS Safety Report 15580775 (Version 1)
Quarter: 2018Q4

REPORT INFORMATION
  Report Type: Spontaneous
  Country: US (occurrence: US)
  Receive Date: 20181104
  Receipt Date: 20181104
  Transmission Date: 20190205
  Serious: Yes (Other)
  Sender: FDA-Public Use
  Company Number: None

PATIENT
  Age: 51 Year
  Sex: Female
  Weight: 45.9 kg

DRUGS (1)
  1. AIMOVIG [Suspect]
     Active Substance: ERENUMAB-AOOE
     Indication: MIGRAINE
     Dosage: ?          OTHER FREQUENCY:ONE TIME PER MONTH;?
     Route: 058
     Dates: start: 20181022

REACTIONS (13)
  - Vision blurred [None]
  - Photopsia [None]
  - Drug ineffective [None]
  - Fatigue [None]
  - Abdominal discomfort [None]
  - Influenza like illness [None]
  - Tinnitus [None]
  - Neck pain [None]
  - Heart rate increased [None]
  - Arthralgia [None]
  - Constipation [None]
  - Chest pain [None]
  - Insomnia [None]

NARRATIVE: CASE EVENT DATE: 20181025
